FAERS Safety Report 5612921-2 (Version None)
Quarter: 2008Q1

REPORT INFORMATION
  Report Type: 
  Country: None (occurrence: None)
  Receive Date: 20080204
  Receipt Date: 20080110
  Transmission Date: 20080703
  Serious: No
  Sender: FDA-Public Use
  Company Number: US-BOEHRINGER INGELHEIM GMBH, GERMANY-2008-BP-00494BP

PATIENT
  Sex: Male

DRUGS (2)
  1. FLOMAX [Suspect]
     Route: 048
  2. ALEVERT [Concomitant]

REACTIONS (1)
  - COLONOSCOPY ABNORMAL [None]
